FAERS Safety Report 21986661 (Version 1)
Quarter: 2023Q1

REPORT INFORMATION
  Report Type: Spontaneous
  Country: GB (occurrence: GB)
  Receive Date: 20230213
  Receipt Date: 20230213
  Transmission Date: 20230417
  Serious: Yes (Death)
  Sender: FDA-Public Use
  Company Number: GB-ROCHE-2848287

PATIENT
  Age: 67 Year
  Sex: Female
  Weight: 75.6 kg

DRUGS (30)
  1. DOXORUBICIN [Suspect]
     Active Substance: DOXORUBICIN
     Indication: Diffuse large B-cell lymphoma
     Dosage: ON DAY 1 OF EACH 21-DAY CYCLE 24-MAY-2021 FROM 12:35 PM TO 12:40 PM (90 MG/M2) VOLUME 50 ML,
     Route: 042
     Dates: start: 20210524
  2. VINCRISTINE [Suspect]
     Active Substance: VINCRISTINE
     Indication: Diffuse large B-cell lymphoma
     Dosage: ON DAY 1 OF EACH 21-DAY CYCLE WITH A RECOMMENDED CAP OF 2 MG 24-MAY-2021 FROM 12:55 PM TO 1:05 PM (2
     Route: 042
     Dates: start: 20210524
  3. CYCLOPHOSPHAMIDE [Suspect]
     Active Substance: CYCLOPHOSPHAMIDE
     Indication: Diffuse large B-cell lymphoma
     Dosage: ON DAY 1 OF EACH 21-DAY CYCLE 24-MAY-2021 FROM 12:45 PM TO 12:50 PM (1400 MG/M2) VOLUME 100 ML.
     Route: 042
     Dates: start: 20210524
  4. METHYLPREDNISOLONE [Suspect]
     Active Substance: METHYLPREDNISOLONE
     Indication: Diffuse large B-cell lymphoma
     Dosage: DOSE LAST STUDY DRUG ADMIN PRIOR AE/SAE: 80 MG , ON 24/MAY/2021 AT 12:30 PM, MOST RECENT DOSE OF STU
     Route: 048
     Dates: start: 20210524
  5. METHYLPREDNISOLONE [Suspect]
     Active Substance: METHYLPREDNISOLONE
     Route: 065
  6. RITUXIMAB [Suspect]
     Active Substance: RITUXIMAB
     Indication: Diffuse large B-cell lymphoma
     Dosage: ON DAY1 OF EACH 21-DAY CYCLE STARTING FROM CYCLE 1 TO CYCLE 6 (PART 1) OR FROM CYCLES 1-6 (UP TO 8),
     Route: 042
     Dates: start: 20210524
  7. RITUXIMAB [Suspect]
     Active Substance: RITUXIMAB
     Route: 065
  8. ACYCLOVIR [Concomitant]
     Active Substance: ACYCLOVIR
     Indication: Product used for unknown indication
     Route: 065
     Dates: start: 20210517, end: 20210524
  9. ALLOPURINOL [Concomitant]
     Active Substance: ALLOPURINOL
     Indication: Hyperuricaemia
     Route: 065
     Dates: start: 20210507, end: 20210524
  10. CHLORPHENIRAMINE MALEATE [Concomitant]
     Active Substance: CHLORPHENIRAMINE MALEATE
     Indication: Product used for unknown indication
     Route: 042
     Dates: start: 20210524, end: 20210524
  11. COTRIMOXAZOLE [Concomitant]
     Active Substance: SULFAMETHOXAZOLE\TRIMETHOPRIM
     Indication: Product used for unknown indication
     Route: 065
     Dates: start: 20210511, end: 20210524
  12. DEXAMETHASONE [Concomitant]
     Active Substance: DEXAMETHASONE
     Indication: Product used for unknown indication
     Route: 065
     Dates: start: 20210506, end: 20210513
  13. LANOLIN\LIGHT MINERAL OIL\PARAFFIN [Concomitant]
     Active Substance: LANOLIN\LIGHT MINERAL OIL\PARAFFIN
     Indication: Product used for unknown indication
     Route: 065
     Dates: start: 20210519, end: 20210524
  14. ENOXAPARIN [Concomitant]
     Active Substance: ENOXAPARIN
     Indication: Product used for unknown indication
     Route: 065
     Dates: start: 20210513, end: 20210524
  15. FLUCONAZOLE [Concomitant]
     Active Substance: FLUCONAZOLE
     Indication: Product used for unknown indication
     Route: 065
     Dates: start: 20210514, end: 20210524
  16. FLUCONAZOLE [Concomitant]
     Active Substance: FLUCONAZOLE
     Route: 065
     Dates: start: 20210514, end: 20210520
  17. FOSFOMYCIN [Concomitant]
     Active Substance: FOSFOMYCIN
     Indication: Urinary tract infection
     Route: 065
     Dates: start: 20210513, end: 20210513
  18. FUROSEMIDE [Concomitant]
     Active Substance: FUROSEMIDE
     Indication: Product used for unknown indication
     Route: 065
     Dates: start: 20210519, end: 20210524
  19. LANSOPRAZOLE [Concomitant]
     Active Substance: LANSOPRAZOLE
     Indication: Product used for unknown indication
     Route: 065
     Dates: start: 20210506, end: 20210524
  20. METRONIDAZOLE [Concomitant]
     Active Substance: METRONIDAZOLE
     Indication: Product used for unknown indication
     Route: 065
     Dates: start: 20210514, end: 20210514
  21. ONDANSETRON [Concomitant]
     Active Substance: ONDANSETRON
     Indication: Product used for unknown indication
     Route: 065
     Dates: start: 20210524, end: 20210524
  22. ACETAMINOPHEN [Concomitant]
     Active Substance: ACETAMINOPHEN
     Indication: Product used for unknown indication
     Route: 065
     Dates: start: 20210507, end: 20210524
  23. ACETAMINOPHEN [Concomitant]
     Active Substance: ACETAMINOPHEN
     Route: 048
     Dates: start: 20210524, end: 20210524
  24. MEPERIDINE [Concomitant]
     Active Substance: MEPERIDINE
     Indication: Analgesic therapy
     Route: 065
     Dates: start: 20210524, end: 20210524
  25. SANDO-K [Concomitant]
     Indication: Product used for unknown indication
     Route: 065
     Dates: start: 20210521, end: 20210523
  26. PIPERACILLIN SODIUM\TAZOBACTAM SODIUM [Concomitant]
     Active Substance: PIPERACILLIN SODIUM\TAZOBACTAM SODIUM
     Indication: Product used for unknown indication
     Route: 065
     Dates: start: 20210507, end: 20210511
  27. TIMOLOL [Concomitant]
     Active Substance: TIMOLOL
     Indication: Ocular hypertension
     Route: 065
     Dates: start: 20210516, end: 20210524
  28. TIMOLOL [Concomitant]
     Active Substance: TIMOLOL
     Indication: Iridocyclitis
  29. METHYLPREDNISOLONE [Concomitant]
     Active Substance: METHYLPREDNISOLONE
     Indication: Adverse drug reaction
     Route: 065
     Dates: start: 20210524, end: 20210524
  30. FORTIJUICE [Concomitant]
     Indication: Product used for unknown indication

REACTIONS (1)
  - Infusion related reaction [Fatal]

NARRATIVE: CASE EVENT DATE: 20210524
